FAERS Safety Report 8345419-1 (Version None)
Quarter: 2012Q2

REPORT INFORMATION
  Report Type: 
  Country: None (occurrence: None)
  Receive Date: 20120508
  Receipt Date: 20120423
  Transmission Date: 20120825
  Serious: Yes (Other)
  Sender: FDA-Public Use
  Company Number: CHPA2012US009813

PATIENT
  Sex: Female

DRUGS (8)
  1. EXCEDRIN EXTRA STRENGTH TABLETS [Concomitant]
     Indication: MIGRAINE
     Dosage: 1 DF, UNK
     Route: 048
     Dates: start: 20120411, end: 20120411
  2. LOVASTATIN [Concomitant]
     Indication: BLOOD CHOLESTEROL INCREASED
     Dosage: UNK
     Route: 048
     Dates: start: 20000101
  3. POTASSIUM CHLORIDE [Concomitant]
     Dosage: 1 DF, QD
     Route: 048
  4. EXCEDRIN EXTRA STRENGTH TABLETS [Concomitant]
     Dosage: 1 DF, UNK
     Route: 048
     Dates: start: 20120420, end: 20120420
  5. ALLOPURINOL [Concomitant]
     Indication: GOUT
     Dosage: 2 DF, QD
     Route: 048
  6. IBUPROFEN TABLETS [Suspect]
     Indication: BACK PAIN
     Dosage: 1 DF, PRN
     Route: 048
     Dates: start: 20090101
  7. EXCEDRIN EXTRA STRENGTH TABLETS [Concomitant]
     Dosage: UNK DF, UNK
     Route: 048
  8. METOPROLOL TARTRATE [Concomitant]
     Indication: HYPERTENSION
     Dosage: UNK
     Route: 048
     Dates: start: 19890101

REACTIONS (3)
  - DIARRHOEA [None]
  - DIABETES MELLITUS [None]
  - ABDOMINAL PAIN UPPER [None]
